FAERS Safety Report 7965394-9 (Version None)
Quarter: 2011Q4

REPORT INFORMATION
  Report Type: 
  Country: None (occurrence: None)
  Receive Date: 20111208
  Receipt Date: 20111125
  Transmission Date: 20120403
  Serious: Yes (Death, Hospitalization)
  Sender: FDA-Public Use
  Company Number: KR-ACTELION-A-CH2011-57557

PATIENT
  Sex: Male
  Weight: 70 kg

DRUGS (1)
  1. TRACLEER [Suspect]
     Indication: PULMONARY ARTERIAL HYPERTENSION
     Dosage: 125 MG, BID
     Route: 048
     Dates: start: 20080714, end: 20110127

REACTIONS (11)
  - PULMONARY ARTERIAL HYPERTENSION [None]
  - UPPER RESPIRATORY TRACT INFECTION [None]
  - URINE OUTPUT DECREASED [None]
  - RENAL FAILURE [None]
  - COUGH [None]
  - DYSPNOEA [None]
  - ORTHOPNOEA [None]
  - CONDITION AGGRAVATED [None]
  - PULMONARY OEDEMA [None]
  - WEIGHT INCREASED [None]
  - PRODUCTIVE COUGH [None]
